FAERS Safety Report 6887986-0 (Version None)
Quarter: 2010Q3

REPORT INFORMATION
  Report Type: 
  Country: None (occurrence: None)
  Receive Date: 20100730
  Receipt Date: 20100720
  Transmission Date: 20110219
  Serious: Yes (Hospitalization)
  Sender: FDA-Public Use
  Company Number: A0867753A

PATIENT
  Age: 57 Year
  Sex: Male
  Weight: 104.5 kg

DRUGS (17)
  1. AVANDIA [Suspect]
     Dosage: 8MG PER DAY
     Route: 048
  2. TOPROL-XL [Concomitant]
  3. CELEBREX [Concomitant]
  4. LIPITOR [Concomitant]
  5. METFORMIN HCL [Concomitant]
  6. SINGULAIR [Concomitant]
  7. ALTACE [Concomitant]
  8. PROTONIX [Concomitant]
  9. GLYBURIDE [Concomitant]
  10. NORVASC [Concomitant]
  11. DICLOFENAC SODIUM [Concomitant]
  12. ALBUTEROL [Concomitant]
  13. CPAP [Concomitant]
  14. OXYGEN [Concomitant]
  15. FLONASE [Concomitant]
  16. GLUCOPHAGE [Concomitant]
  17. DIABETA [Concomitant]

REACTIONS (1)
  - CEREBROVASCULAR ACCIDENT [None]
